FAERS Safety Report 20702015 (Version 1)
Quarter: 2022Q2

REPORT INFORMATION
  Report Type: Spontaneous
  Country: US (occurrence: US)
  Receive Date: 20220412
  Receipt Date: 20220412
  Transmission Date: 20220721
  Serious: No
  Sender: FDA-Public Use
  Company Number: US-PFIZER INC-2021756019

PATIENT
  Age: 83 Year
  Sex: Female

DRUGS (1)
  1. RELPAX [Suspect]
     Active Substance: ELETRIPTAN HYDROBROMIDE
     Dosage: UNK UNK, AS NEEDED

REACTIONS (3)
  - Migraine [Unknown]
  - Vision blurred [Unknown]
  - Therapeutic response unexpected [Unknown]
